FAERS Safety Report 5066420-X (Version None)
Quarter: 2006Q3

REPORT INFORMATION
  Report Type: 
  Country: None (occurrence: None)
  Receive Date: 20060728
  Receipt Date: 20060728
  Transmission Date: 20061208
  Serious: Yes (Other)
  Sender: FDA-Public Use
  Company Number: None

PATIENT
  Age: 1 Year
  Sex: Male

DRUGS (2)
  1. COPPERTONE SPORT LOTION SPF 30 LOTION [Suspect]
     Indication: PROPHYLAXIS
     Dosage: TOPICAL
     Route: 061
     Dates: start: 20060611, end: 20060611
  2. COPPERTONE SPORT LOTION SPF 30 LOTION [Suspect]
     Indication: SUNBURN
     Dosage: TOPICAL
     Route: 061
     Dates: start: 20060611, end: 20060611

REACTIONS (1)
  - BURNS THIRD DEGREE [None]
